FAERS Safety Report 24421122 (Version 5)
Quarter: 2025Q1

REPORT INFORMATION
  Report Type: Report from Study
  Country: US (occurrence: US)
  Receive Date: 20241010
  Receipt Date: 20250313
  Transmission Date: 20250409
  Serious: Yes (Hospitalization)
  Sender: INSMED
  Company Number: US-INSMED, INC.-2024-03898-US

PATIENT
  Sex: Female

DRUGS (2)
  1. ARIKAYCE [Suspect]
     Active Substance: AMIKACIN
     Indication: Mycobacterial infection
     Dosage: 590 MILLIGRAM, QD
     Route: 055
     Dates: start: 202409, end: 20241023
  2. ARIKAYCE [Suspect]
     Active Substance: AMIKACIN
     Route: 055
     Dates: end: 202501

REACTIONS (10)
  - Hospitalisation [Unknown]
  - Lung disorder [Unknown]
  - Hypersomnia [Not Recovered/Not Resolved]
  - Condition aggravated [Unknown]
  - Bronchospasm [Unknown]
  - Dyspnoea [Unknown]
  - Product dose omission issue [Unknown]
  - Product distribution issue [Unknown]
  - Device issue [Unknown]
  - Accidental underdose [Unknown]

NARRATIVE: CASE EVENT DATE: 20240101
